FAERS Safety Report 7025436-4 (Version None)
Quarter: 2010Q4

REPORT INFORMATION
  Report Type: 
  Country: None (occurrence: None)
  Receive Date: 20101001
  Receipt Date: 20100928
  Transmission Date: 20110411
  Serious: Yes (Life-Threatening, Hospitalization)
  Sender: FDA-Public Use
  Company Number: PHHY2010DE64261

PATIENT
  Age: 70 Year
  Sex: Female

DRUGS (1)
  1. GLEEVEC [Suspect]
     Indication: CHRONIC MYELOID LEUKAEMIA
     Dosage: UNK
     Route: 048

REACTIONS (5)
  - ARTERIAL DISORDER [None]
  - ARTERIAL HAEMORRHAGE [None]
  - ARTERIAL STENT INSERTION [None]
  - CHEST PAIN [None]
  - HAEMATOMA [None]
